FAERS Safety Report 5527511-X (Version None)
Quarter: 2007Q4

REPORT INFORMATION
  Report Type: 
  Country: None (occurrence: None)
  Receive Date: 20071128
  Receipt Date: 20071116
  Transmission Date: 20080405
  Serious: Yes (Hospitalization, Other)
  Sender: FDA-Public Use
  Company Number: HQWYE660225FEB03

PATIENT
  Sex: Female
  Weight: 58.11 kg

DRUGS (3)
  1. PREMARIN [Suspect]
     Dosage: 0.625MG DAILY
     Route: 048
     Dates: start: 19930101
  2. PREMPRO/PREMPHASE [Suspect]
     Dosage: 0.625MG/UNSPECIFIED
     Route: 048
     Dates: start: 19990101, end: 20020101
  3. PROVERA [Suspect]
     Dosage: 5MG DAILY
     Route: 048
     Dates: start: 19930101

REACTIONS (6)
  - ATRIAL FIBRILLATION [None]
  - CHEST PAIN [None]
  - INTRACARDIAC THROMBUS [None]
  - METRORRHAGIA [None]
  - MITRAL VALVE INCOMPETENCE [None]
  - MYOCARDIAL INFARCTION [None]
